FAERS Safety Report 13114817 (Version 2)
Quarter: 2017Q3

REPORT INFORMATION
  Report Type: Spontaneous
  Country: GB (occurrence: GB)
  Receive Date: 20170113
  Receipt Date: 20170824
  Transmission Date: 20171127
  Serious: Yes (Disabling, Congenital Anomaly)
  Sender: FDA-Public Use
  Company Number: GB-ALLERGAN-1701279US

PATIENT
  Age: 18 Day
  Sex: Female

DRUGS (5)
  1. GABAPENTIN. [Suspect]
     Active Substance: GABAPENTIN
     Indication: MATERNAL EXPOSURE TIMING UNSPECIFIED
     Dosage: 600 MG, TID
     Route: 064
  2. DIHYDROCODEINE [Suspect]
     Active Substance: DIHYDROCODEINE
     Indication: MATERNAL EXPOSURE TIMING UNSPECIFIED
     Dosage: 90 MG, QD
     Route: 064
  3. QUETIAPINE. [Suspect]
     Active Substance: QUETIAPINE
     Indication: MATERNAL EXPOSURE TIMING UNSPECIFIED
     Dosage: 75 MG ONCE DAILY
     Route: 064
  4. CITALOPRAM HYDROBROMIDE - BP [Suspect]
     Active Substance: CITALOPRAM HYDROBROMIDE
     Indication: MATERNAL EXPOSURE TIMING UNSPECIFIED
     Dosage: 40 MG, QD
     Route: 064
  5. OMEPRAZOLE. [Suspect]
     Active Substance: OMEPRAZOLE
     Indication: MATERNAL EXPOSURE TIMING UNSPECIFIED
     Dosage: 20 MG, QD
     Route: 064

REACTIONS (2)
  - Congenital thrombocytopenia [Recovering/Resolving]
  - Foetal exposure during pregnancy [Unknown]
